FAERS Safety Report 14309499 (Version 4)
Quarter: 2018Q3

REPORT INFORMATION
  Report Type: Report from Study
  Country: US (occurrence: US)
  Receive Date: 20171220
  Receipt Date: 20180719
  Transmission Date: 20181010
  Serious: No
  Sender: FDA-Public Use
  Company Number: US-AMGEN-USASL2017185138

PATIENT
  Age: 61 Year
  Sex: Female

DRUGS (2)
  1. REPATHA [Suspect]
     Active Substance: EVOLOCUMAB
     Indication: HYPERCHOLESTEROLAEMIA
     Dosage: 140 MG, Q2WK
     Route: 065
     Dates: start: 201710
  2. REPATHA [Suspect]
     Active Substance: EVOLOCUMAB
     Indication: BLOOD CHOLESTEROL INCREASED
     Dosage: 140 MG, QMO
     Route: 065

REACTIONS (12)
  - Headache [Unknown]
  - Injection site pain [Unknown]
  - Swelling [Unknown]
  - Mobility decreased [Unknown]
  - Joint lock [Recovered/Resolved]
  - Arthralgia [Not Recovered/Not Resolved]
  - Sinus disorder [Unknown]
  - Back pain [Unknown]
  - Off label use [Unknown]
  - Sneezing [Unknown]
  - Hunger [Recovered/Resolved]
  - Injection site swelling [Unknown]
